FAERS Safety Report 5285012-0 (Version None)
Quarter: 2007Q2

REPORT INFORMATION
  Report Type: 
  Country: None (occurrence: None)
  Receive Date: 20070403
  Receipt Date: 20070322
  Transmission Date: 20071010
  Serious: Yes (Hospitalization)
  Sender: FDA-Public Use
  Company Number: JP-PFIZER INC-2007011677

PATIENT
  Sex: Female
  Weight: 40.5 kg

DRUGS (5)
  1. AZULFIDINE EN-TABS [Suspect]
     Indication: RHEUMATOID ARTHRITIS
     Dosage: DAILY DOSE:500MG
     Route: 048
     Dates: start: 20070110, end: 20070130
  2. MOBIC [Suspect]
     Indication: RHEUMATOID ARTHRITIS
     Dosage: DAILY DOSE:10MG
     Route: 048
     Dates: start: 20070110, end: 20070130
  3. POLAPREZINC [Suspect]
     Indication: GASTRITIS
     Dosage: DAILY DOSE:150MG
     Route: 048
     Dates: start: 20070110, end: 20070130
  4. HERBAL PREPARATION [Suspect]
     Indication: RHEUMATOID ARTHRITIS
     Dosage: DAILY DOSE:7.5GRAM
     Route: 048
     Dates: start: 20070110, end: 20070130
  5. ALL OTHER THERAPEUTIC PRODUCTS [Concomitant]
     Route: 048
     Dates: start: 20070110, end: 20070130

REACTIONS (1)
  - DRUG HYPERSENSITIVITY [None]
